FAERS Safety Report 6991976-7 (Version None)
Quarter: 2010Q3

REPORT INFORMATION
  Report Type: 
  Country: None (occurrence: None)
  Receive Date: 20100917
  Receipt Date: 20100909
  Transmission Date: 20110219
  Serious: No
  Sender: FDA-Public Use
  Company Number: US-US-EMD SERONO, INC.-232715J10USA

PATIENT
  Sex: Female

DRUGS (9)
  1. REBIF [Suspect]
     Indication: MULTIPLE SCLEROSIS
     Route: 065
     Dates: start: 20060401, end: 20061201
  2. REBIF [Suspect]
     Route: 058
     Dates: start: 20100211, end: 20100301
  3. REBIF [Suspect]
     Route: 058
     Dates: start: 20100301, end: 20100301
  4. REBIF [Suspect]
     Route: 058
     Dates: start: 20100315
  5. VALIUM [Concomitant]
  6. CYMBALTA [Concomitant]
     Indication: ANXIETY
     Route: 065
     Dates: start: 20100201
  7. CYMBALTA [Concomitant]
     Indication: DEPRESSION
  8. LORAZEPAM [Concomitant]
     Indication: ANXIETY
     Route: 065
  9. LORAZEPAM [Concomitant]
     Indication: DEPRESSION

REACTIONS (8)
  - BRAIN NEOPLASM [None]
  - DYSPNOEA [None]
  - FALL [None]
  - FATIGUE [None]
  - FEELING ABNORMAL [None]
  - MUSCULAR WEAKNESS [None]
  - PAIN IN EXTREMITY [None]
  - POLLAKIURIA [None]
